FAERS Safety Report 7527205-5 (Version None)
Quarter: 2011Q2

REPORT INFORMATION
  Report Type: 
  Country: None (occurrence: None)
  Receive Date: 20110607
  Receipt Date: 20110531
  Transmission Date: 20111010
  Serious: No
  Sender: FDA-Public Use
  Company Number: US-BIOGENIDEC-2011BI020233

PATIENT
  Age: 50 Year
  Sex: Female

DRUGS (1)
  1. TYSABRI [Suspect]
     Indication: MULTIPLE SCLEROSIS
     Route: 042
     Dates: start: 20080722

REACTIONS (7)
  - EPSTEIN-BARR VIRUS INFECTION [None]
  - FATIGUE [None]
  - HYPOAESTHESIA [None]
  - MENTAL IMPAIRMENT [None]
  - MUSCULOSKELETAL PAIN [None]
  - TRANSIENT ISCHAEMIC ATTACK [None]
  - MULTIPLE SCLEROSIS [None]
